FAERS Safety Report 7984089-9 (Version None)
Quarter: 2011Q4

REPORT INFORMATION
  Report Type: 
  Country: None (occurrence: None)
  Receive Date: 20111216
  Receipt Date: 20111212
  Transmission Date: 20120403
  Serious: No
  Sender: FDA-Public Use
  Company Number: US-PFIZER INC-US-WYE-H02819008

PATIENT
  Age: 63 Year
  Sex: Female

DRUGS (3)
  1. TOPROL-XL [Concomitant]
  2. PREMARIN [Suspect]
     Indication: MENOPAUSAL SYMPTOMS
     Dosage: ONE APPLICATION, ONE TIME
     Route: 067
     Dates: start: 20080101, end: 20080101
  3. PREMARIN [Suspect]
     Dosage: UNK

REACTIONS (4)
  - ABDOMINAL PAIN [None]
  - EXPIRED DRUG ADMINISTERED [None]
  - VAGINAL DISCHARGE [None]
  - APPLICATION SITE PAIN [None]
